FAERS Safety Report 20875082 (Version 1)
Quarter: 2022Q2

REPORT INFORMATION
  Report Type: Spontaneous
  Country: US (occurrence: US)
  Receive Date: 20220526
  Receipt Date: 20220526
  Transmission Date: 20220720
  Serious: No
  Sender: FDA-Public Use
  Company Number: US-STRIDES ARCOLAB LIMITED-2021SP006219

PATIENT

DRUGS (2)
  1. VANCOMYCIN [Suspect]
     Active Substance: VANCOMYCIN
     Indication: Product used for unknown indication
     Dosage: 5 MILLIGRAM CAPSULES, QID
     Route: 065
     Dates: start: 202102
  2. VANCOMYCIN [Suspect]
     Active Substance: VANCOMYCIN
     Dosage: 125 MILLIGRAM CAPSULE
     Route: 065
     Dates: start: 2021

REACTIONS (1)
  - Nausea [Unknown]

NARRATIVE: CASE EVENT DATE: 20210501
